FAERS Safety Report 9318306 (Version 2)
Quarter: 2014Q2

REPORT INFORMATION
  Report Type: Spontaneous
  Country: US (occurrence: US)
  Receive Date: 20130530
  Receipt Date: 20140530
  Transmission Date: 20141212
  Serious: No
  Sender: FDA-Public Use
  Company Number: US-GLAXOSMITHKLINE-A1011319A

PATIENT
  Age: 56 Year
  Sex: Male

DRUGS (2)
  1. VENTOLIN HFA [Suspect]
     Indication: ASTHMA
     Route: 055
     Dates: start: 20121109
  2. ADVAIR [Concomitant]
     Dates: start: 20121110

REACTIONS (2)
  - Asthma [Unknown]
  - Drug administration error [Unknown]
